FAERS Safety Report 17516899 (Version 1)
Quarter: 2020Q1

REPORT INFORMATION
  Report Type: Spontaneous
  Country: US (occurrence: US)
  Receive Date: 20200307
  Receipt Date: 20200307
  Transmission Date: 20200409
  Serious: Yes (Other)
  Sender: FDA-Public Use
  Company Number: None

PATIENT
  Age: 8 Year
  Sex: Male

DRUGS (3)
  1. FLONASE [Suspect]
     Active Substance: FLUTICASONE PROPIONATE
     Indication: HYPERSENSITIVITY
     Route: 048
     Dates: start: 20170301, end: 20170501
  2. FLOVENT [Concomitant]
     Active Substance: FLUTICASONE PROPIONATE
  3. FISH OIL [Concomitant]
     Active Substance: FISH OIL

REACTIONS (4)
  - Urinary incontinence [None]
  - Fear [None]
  - Anxiety [None]
  - Crying [None]
